FAERS Safety Report 13264256 (Version 4)
Quarter: 2017Q2

REPORT INFORMATION
  Report Type: Spontaneous
  Country: US (occurrence: US)
  Receive Date: 20170223
  Receipt Date: 20170626
  Transmission Date: 20170830
  Serious: Yes (Other)
  Sender: FDA-Public Use
  Company Number: US-PFIZER INC-2017071286

PATIENT
  Age: 56 Year
  Sex: Male

DRUGS (1)
  1. ELELYSO [Suspect]
     Active Substance: TALIGLUCERASE ALFA
     Indication: GAUCHER^S DISEASE
     Dosage: 5400 EVERY 2 WEEKS
     Dates: start: 20130115

REACTIONS (8)
  - Device related infection [Unknown]
  - Exostosis [Unknown]
  - Chills [Unknown]
  - Malaise [Unknown]
  - Pyrexia [Unknown]
  - Road traffic accident [Unknown]
  - Spinal column injury [Unknown]
  - Muscle tightness [Unknown]

NARRATIVE: CASE EVENT DATE: 201610
